FAERS Safety Report 8107121-0 (Version None)
Quarter: 2011Q4

REPORT INFORMATION
  Report Type: 
  Country: None (occurrence: None)
  Receive Date: 20111227
  Receipt Date: 20111004
  Transmission Date: 20120403
  Serious: No
  Sender: FDA-Public Use
  Company Number: PHEH2011US04559

PATIENT
  Age: 34 Year
  Sex: Female

DRUGS (3)
  1. ZYRTEC [Concomitant]
  2. GILENYA [Suspect]
     Indication: RELAPSING-REMITTING MULTIPLE SCLEROSIS
     Dosage: 0.5 MG, EVERYDAY, ORAL
     Route: 048
     Dates: start: 20110706
  3. SINGULAIR [Concomitant]

REACTIONS (2)
  - HEART RATE DECREASED [None]
  - LETHARGY [None]
